FAERS Safety Report 17878792 (Version 1)
Quarter: 2020Q2

REPORT INFORMATION
  Report Type: Spontaneous
  Country: US (occurrence: US)
  Receive Date: 20200610
  Receipt Date: 20200610
  Transmission Date: 20200714
  Serious: No
  Sender: FDA-Public Use
  Company Number: US-ADVANZ PHARMA-202005005324

PATIENT

DRUGS (3)
  1. HYDROXYCHLOROQUINE [Suspect]
     Active Substance: HYDROXYCHLOROQUINE
     Indication: PRODUCT USE IN UNAPPROVED INDICATION
     Dosage: UNK
  2. ZINC. [Suspect]
     Active Substance: ZINC
     Indication: PRODUCT USE IN UNAPPROVED INDICATION
     Dosage: UNK
  3. ZITHROMAX [Suspect]
     Active Substance: AZITHROMYCIN DIHYDRATE
     Indication: PRODUCT USE IN UNAPPROVED INDICATION
     Dosage: UNK

REACTIONS (1)
  - Off label use [Unknown]
